FAERS Safety Report 4625814-4 (Version None)
Quarter: 2005Q2

REPORT INFORMATION
  Report Type: 
  Country: None (occurrence: None)
  Receive Date: 20050404
  Receipt Date: 20050328
  Transmission Date: 20051028
  Serious: Yes (Hospitalization)
  Sender: FDA-Public Use
  Company Number: 200510932JP

PATIENT
  Age: 56 Year
  Sex: Male

DRUGS (2)
  1. TAXOTERE [Suspect]
     Route: 041
     Dates: start: 20050315, end: 20050315
  2. ANTINEOPLASTIC AND IMMUNOSUPPRESSIVE AGENTS [Concomitant]

REACTIONS (1)
  - CEREBRAL INFARCTION [None]
